FAERS Safety Report 4990326-5 (Version None)
Quarter: 2006Q2

REPORT INFORMATION
  Report Type: 
  Country: None (occurrence: None)
  Receive Date: 20060503
  Receipt Date: 20050817
  Transmission Date: 20061013
  Serious: Yes (Hospitalization)
  Sender: FDA-Public Use
  Company Number: 2005AP04469

PATIENT
  Age: 26518 Day
  Sex: Male

DRUGS (6)
  1. IRESSA [Suspect]
     Indication: LARYNGEAL CANCER RECURRENT
     Route: 048
     Dates: start: 20050506, end: 20050715
  2. ATROVENT [Concomitant]
     Indication: CHRONIC OBSTRUCTIVE PULMONARY DISEASE
     Route: 048
     Dates: start: 20021001
  3. VENTOLIN [Concomitant]
     Indication: CHRONIC OBSTRUCTIVE PULMONARY DISEASE
     Route: 048
     Dates: start: 20021001
  4. MUCOMYST [Concomitant]
     Indication: PROPHYLAXIS
     Route: 048
     Dates: start: 20021001
  5. SALINE NEBULISER [Concomitant]
     Indication: PROPHYLAXIS
     Route: 048
     Dates: start: 20021001
  6. RADIOTHERAPY [Concomitant]
     Dosage: TO THE LARYNX
     Dates: start: 20021002, end: 20021024

REACTIONS (5)
  - COLITIS PSEUDOMEMBRANOUS [None]
  - COLITIS ULCERATIVE [None]
  - CYTOMEGALOVIRUS COLITIS [None]
  - DYSPNOEA [None]
  - LOWER RESPIRATORY TRACT INFECTION [None]
